FAERS Safety Report 5939920-5 (Version None)
Quarter: 2008Q4

REPORT INFORMATION
  Report Type: 
  Country: None (occurrence: None)
  Receive Date: 20081030
  Receipt Date: 20081030
  Transmission Date: 20090506
  Serious: Yes (Other)
  Sender: FDA-Public Use
  Company Number: None

PATIENT
  Age: 59 Year
  Sex: Male
  Weight: 104.3273 kg

DRUGS (1)
  1. COLCHICINE 0.6 MG QUALITEST [Suspect]
     Indication: GOUT
     Dosage: 1 3XDAILY PO
     Route: 048
     Dates: start: 20081024, end: 20081027

REACTIONS (3)
  - DRUG INEFFECTIVE [None]
  - EXPIRED DRUG ADMINISTERED [None]
  - PRODUCT QUALITY ISSUE [None]
